FAERS Safety Report 6714551-8 (Version None)
Quarter: 2010Q2

REPORT INFORMATION
  Report Type: 
  Country: None (occurrence: None)
  Receive Date: 20100506
  Receipt Date: 20100423
  Transmission Date: 20101027
  Serious: Yes (Hospitalization)
  Sender: FDA-Public Use
  Company Number: DE-MYLANLABS-2009S1004853

PATIENT
  Age: 85 Year
  Sex: Male
  Weight: 74 kg

DRUGS (4)
  1. ENALAPRIL MALEATE [Suspect]
     Indication: HYPERTENSION
     Route: 048
  2. ENALAPRIL MALEATE [Suspect]
     Route: 048
  3. METOPROLOL [Suspect]
     Indication: HYPERTENSION
     Route: 048
  4. SPIRO [Suspect]
     Indication: HYPERTENSION
     Route: 048

REACTIONS (1)
  - HYPOTENSION [None]
